FAERS Safety Report 25749083 (Version 1)
Quarter: 2025Q3

REPORT INFORMATION
  Report Type: Spontaneous
  Country: JP (occurrence: JP)
  Receive Date: 20250902
  Receipt Date: 20250902
  Transmission Date: 20251021
  Serious: Yes (Hospitalization)
  Sender: SANDOZ
  Company Number: JP-SANDOZ-SDZ2025JP062773

PATIENT
  Age: 9 Decade
  Sex: Female
  Weight: 50 kg

DRUGS (14)
  1. AMLODIPINE [Suspect]
     Active Substance: AMLODIPINE BESYLATE
     Indication: Hypertension
     Route: 065
  2. ESZOPICLONE [Suspect]
     Active Substance: ESZOPICLONE
     Route: 065
  3. ESZOPICLONE [Suspect]
     Active Substance: ESZOPICLONE
     Indication: Insomnia
     Route: 065
  4. LEVOMEPROMAZINE [Suspect]
     Active Substance: LEVOMEPROMAZINE
     Indication: Product used for unknown indication
     Route: 065
  5. LEVOMEPROMAZINE [Suspect]
     Active Substance: LEVOMEPROMAZINE
     Route: 065
  6. LEVOMEPROMAZINE [Suspect]
     Active Substance: LEVOMEPROMAZINE
     Route: 065
  7. QUETIAPINE [Suspect]
     Active Substance: QUETIAPINE
     Indication: Product used for unknown indication
     Route: 065
  8. QUETIAPINE [Suspect]
     Active Substance: QUETIAPINE
     Route: 065
  9. ZOLPIDEM TARTRATE [Suspect]
     Active Substance: ZOLPIDEM TARTRATE
     Indication: Insomnia
     Route: 065
  10. Acetylsalicylic acid;Lansoprazole [Concomitant]
     Indication: Product used for unknown indication
     Route: 065
  11. Clostridium butyricum [Concomitant]
     Indication: Product used for unknown indication
     Dosage: 1 DF, TID, AFTER EACH MEAL
     Route: 065
  12. LACTULOSE [Concomitant]
     Active Substance: LACTULOSE
     Indication: Product used for unknown indication
     Dosage: 1 DF, TID, AFTER EACH MEAL
     Route: 065
  13. Povidone-iodine;Sucrose [Concomitant]
     Indication: Product used for unknown indication
     Route: 065
  14. HERBALS [Concomitant]
     Active Substance: HERBALS
     Indication: Product used for unknown indication
     Route: 065

REACTIONS (2)
  - Decubitus ulcer [Recovered/Resolved]
  - Blood pressure decreased [Unknown]
